FAERS Safety Report 4977888-9 (Version None)
Quarter: 2006Q2

REPORT INFORMATION
  Report Type: 
  Country: None (occurrence: None)
  Receive Date: 20060417
  Receipt Date: 20060401
  Transmission Date: 20061013
  Serious: Yes (Other)
  Sender: FDA-Public Use
  Company Number: 2006045472

PATIENT
  Age: 49 Year
  Sex: Female
  Weight: 56.6996 kg

DRUGS (3)
  1. NEURONTIN [Suspect]
     Indication: MIGRAINE
     Dosage: 300 MG (300 MG, 1 IN 1 D),
     Dates: start: 20060101
  2. LIPITOR [Concomitant]
  3. ESTRADIOL [Concomitant]

REACTIONS (4)
  - DEMYELINATION [None]
  - EYE DISORDER [None]
  - SOMNOLENCE [None]
  - VISUAL FIELD DEFECT [None]
